FAERS Safety Report 6031722-7 (Version None)
Quarter: 2009Q1

REPORT INFORMATION
  Report Type: 
  Country: None (occurrence: None)
  Receive Date: 20090108
  Receipt Date: 20090107
  Transmission Date: 20090719
  Serious: Yes (Other)
  Sender: FDA-Public Use
  Company Number: B0552853A

PATIENT
  Age: 64 Year
  Sex: Male

DRUGS (2)
  1. FLUTICASONE PROPIONATE + SALMETEROL XINAFOATE [Suspect]
     Indication: ASTHMA
     Route: 055
     Dates: start: 20080301
  2. ESCITALOPRAM [Suspect]
     Indication: ANXIETY
     Dosage: 30MG PER DAY
     Route: 048
     Dates: start: 20080606

REACTIONS (1)
  - TYPE 2 DIABETES MELLITUS [None]
